FAERS Safety Report 5325008-3 (Version None)
Quarter: 2007Q2

REPORT INFORMATION
  Report Type: 
  Country: None (occurrence: None)
  Receive Date: 20070515
  Receipt Date: 20070504
  Transmission Date: 20071010
  Serious: Yes (Hospitalization)
  Sender: FDA-Public Use
  Company Number: TR-JNJFOC-20070502438

PATIENT
  Age: 33 Year
  Sex: Female

DRUGS (2)
  1. HALOPERIDOL [Suspect]
     Indication: PSYCHOTIC DISORDER
     Route: 030
  2. HALOPERIDOL [Suspect]
     Indication: AGITATION
     Route: 030

REACTIONS (2)
  - DEEP VEIN THROMBOSIS [None]
  - RHABDOMYOLYSIS [None]
